FAERS Safety Report 7508741-4 (Version None)
Quarter: 2011Q2

REPORT INFORMATION
  Report Type: 
  Country: None (occurrence: None)
  Receive Date: 20110527
  Receipt Date: 20101115
  Transmission Date: 20111010
  Serious: No
  Sender: FDA-Public Use
  Company Number: A0892556A

PATIENT
  Sex: Male

DRUGS (4)
  1. ADVAIR DISKUS 100/50 [Concomitant]
  2. SPIRIVA [Concomitant]
  3. NEBULIZER [Concomitant]
  4. VENTOLIN [Suspect]
     Indication: ASTHMA
     Route: 065

REACTIONS (1)
  - DRUG INEFFECTIVE [None]
